FAERS Safety Report 4493282-1 (Version None)
Quarter: 2004Q4

REPORT INFORMATION
  Report Type: 
  Country: None (occurrence: None)
  Receive Date: 20041102
  Receipt Date: 20041015
  Transmission Date: 20050328
  Serious: Yes (Other)
  Sender: FDA-Public Use
  Company Number: USA041081224

PATIENT
  Age: 76 Year
  Sex: Female
  Weight: 75 kg

DRUGS (1)
  1. HUMALOG [Suspect]
     Dosage: 67 U DAY
     Dates: start: 20020101

REACTIONS (2)
  - MALIGNANT NEOPLASM OF EYELID [None]
  - PHARMACEUTICAL PRODUCT COMPLAINT [None]
